FAERS Safety Report 18364520 (Version 1)
Quarter: 2020Q4

REPORT INFORMATION
  Report Type: Spontaneous
  Country: US (occurrence: US)
  Receive Date: 20201008
  Receipt Date: 20201008
  Transmission Date: 20210114
  Serious: No
  Sender: FDA-Public Use
  Company Number: None

PATIENT
  Age: 65 Year
  Sex: Female
  Weight: 58.5 kg

DRUGS (4)
  1. VITAMIN K2 [Concomitant]
     Active Substance: MENAQUINONE 6
  2. IBANDRONATE SODIUM TABLET [Suspect]
     Active Substance: IBANDRONATE SODIUM
     Indication: OSTEOPOROSIS
     Dosage: ?          QUANTITY:1 TABLET(S);OTHER FREQUENCY:ONCE A MONTH;?
     Route: 048
     Dates: start: 20181101, end: 20200807
  3. IPRATROPIUM BROMIDE. [Concomitant]
     Active Substance: IPRATROPIUM BROMIDE
  4. VITAMIN D [Concomitant]
     Active Substance: VITAMIN D NOS

REACTIONS (6)
  - Decreased appetite [None]
  - Abdominal distension [None]
  - Diarrhoea [None]
  - Weight decreased [None]
  - Gastrointestinal disorder [None]
  - Flatulence [None]

NARRATIVE: CASE EVENT DATE: 20200713
